FAERS Safety Report 8517312-2 (Version None)
Quarter: 2012Q3

REPORT INFORMATION
  Report Type: 
  Country: None (occurrence: None)
  Receive Date: 20120706
  Receipt Date: 20120622
  Transmission Date: 20120928
  Serious: Yes (Hospitalization, Other)
  Sender: FDA-Public Use
  Company Number: 2012P1044116

PATIENT
  Age: 75 Year
  Sex: Male
  Weight: 79.3795 kg

DRUGS (10)
  1. XIAFLEX [Suspect]
     Indication: WOUND
     Dosage: ;BID;TOP
     Route: 061
     Dates: start: 20100101
  2. XIAFLEX [Suspect]
     Indication: WOUND
     Dosage: ;BID;TOP
     Route: 061
     Dates: start: 20120601
  3. FUROSEMIDE [Concomitant]
  4. NOVOLOG [Concomitant]
  5. LANTUS [Concomitant]
  6. SILVER GEL [Concomitant]
  7. CARVEDILOL [Concomitant]
  8. COUMADIN [Concomitant]
  9. ENALAPRIL MALEATE [Concomitant]
  10. LANOXIN [Concomitant]

REACTIONS (4)
  - VASCULAR GRAFT [None]
  - DRUG INEFFECTIVE [None]
  - TOE AMPUTATION [None]
  - GANGRENE [None]
